FAERS Safety Report 12456784 (Version 2)
Quarter: 2016Q2

REPORT INFORMATION
  Report Type: Spontaneous
  Country: PT (occurrence: PT)
  Receive Date: 20160610
  Receipt Date: 20160610
  Transmission Date: 20160815
  Serious: Yes (Other)
  Sender: FDA-Public Use
  Company Number: ALCN2016PT004050

PATIENT
  Age: 47 Year
  Sex: Male

DRUGS (4)
  1. BRINZOLAMIDE [Suspect]
     Active Substance: BRINZOLAMIDE
     Indication: OPEN ANGLE GLAUCOMA
     Dosage: UNK
     Route: 047
  2. BRIMONIDINE [Suspect]
     Active Substance: BRIMONIDINE TARTRATE
     Indication: OPEN ANGLE GLAUCOMA
     Dosage: UNK
     Route: 047
  3. LATANOPROST. [Suspect]
     Active Substance: LATANOPROST
     Indication: OPEN ANGLE GLAUCOMA
     Dosage: UNK
     Route: 047
  4. TIMOLOL. [Suspect]
     Active Substance: TIMOLOL
     Indication: OPEN ANGLE GLAUCOMA
     Dosage: UNK
     Route: 047

REACTIONS (7)
  - Ulcerative keratitis [Recovering/Resolving]
  - Corneal leukoma [Not Recovered/Not Resolved]
  - Eye pain [Recovered/Resolved]
  - Corneal epithelium defect [Recovered/Resolved]
  - Eye abscess [Recovered/Resolved]
  - Bacterial infection [Recovered/Resolved]
  - Ocular hyperaemia [Recovered/Resolved]
